FAERS Safety Report 9265775 (Version 2)
Quarter: 2013Q2

REPORT INFORMATION
  Report Type: Spontaneous
  Country: IT (occurrence: IT)
  Receive Date: 20130501
  Receipt Date: 20130508
  Transmission Date: 20140414
  Serious: Yes (Hospitalization)
  Sender: FDA-Public Use
  Company Number: IT-TEVA-401205ISR

PATIENT
  Age: 80 Year
  Sex: Male

DRUGS (3)
  1. AZITHROMYCINA [Suspect]
     Indication: BRONCHITIS
     Route: 048
  2. ITRACONAZOLO [Suspect]
     Indication: BRONCHITIS
     Dosage: 1 DOSAGE FORMS DAILY;
     Route: 048
  3. ANTICOAGULANT [Concomitant]

REACTIONS (3)
  - Haemolytic anaemia [Recovered/Resolved with Sequelae]
  - Jaundice [Recovered/Resolved with Sequelae]
  - Thrombocytopenia [Recovered/Resolved with Sequelae]
